FAERS Safety Report 15537096 (Version 1)
Quarter: 2018Q4

REPORT INFORMATION
  Report Type: Spontaneous
  Country: GB (occurrence: GB)
  Receive Date: 20181022
  Receipt Date: 20181022
  Transmission Date: 20190205
  Serious: Yes (Death)
  Sender: FDA-Public Use
  Company Number: GB-PFIZER INC-2018427770

PATIENT
  Age: 22 Year
  Sex: Female

DRUGS (3)
  1. KETAMINE HCL [Suspect]
     Active Substance: KETAMINE HYDROCHLORIDE
     Dosage: UNK
  2. COCAINE [Suspect]
     Active Substance: COCAINE
     Dosage: UNK
  3. PREGABALIN. [Suspect]
     Active Substance: PREGABALIN
     Dosage: UNK

REACTIONS (6)
  - Dysarthria [Unknown]
  - Vomiting [Unknown]
  - Drug level increased [Fatal]
  - Balance disorder [Unknown]
  - Drowning [Fatal]
  - Accidental death [Fatal]

NARRATIVE: CASE EVENT DATE: 20180505
